FAERS Safety Report 11540274 (Version 1)
Quarter: 2015Q3

REPORT INFORMATION
  Report Type: Spontaneous
  Country: CN (occurrence: CN)
  Receive Date: 20150923
  Receipt Date: 20150923
  Transmission Date: 20151125
  Serious: Yes (Hospitalization, Other)
  Sender: FDA-Public Use
  Company Number: CN-SUN PHARMACEUTICAL INDUSTRIES LTD-2015RR-103573

PATIENT

DRUGS (2)
  1. OXALIPLATIN. [Suspect]
     Active Substance: OXALIPLATIN
     Indication: CHEMOTHERAPY
     Dosage: 150 MG, DAY 1
     Route: 041
  2. TS-1 [Suspect]
     Active Substance: GIMERACIL\OTERACIL\TEGAFUR
     Indication: CHEMOTHERAPY
     Dosage: 40 MG, BID (DAY 1-14)
     Route: 048

REACTIONS (1)
  - Gallbladder perforation [Recovered/Resolved]
